FAERS Safety Report 18174112 (Version 1)
Quarter: 2020Q3

REPORT INFORMATION
  Report Type: Spontaneous
  Country: US (occurrence: US)
  Receive Date: 20200819
  Receipt Date: 20200819
  Transmission Date: 20201103
  Serious: No
  Sender: FDA-Public Use
  Company Number: None

PATIENT
  Age: 32 Year
  Sex: Male

DRUGS (2)
  1. DESCOVY [Concomitant]
     Active Substance: EMTRICITABINE\TENOFOVIR ALAFENAMIDE FUMARATE
     Dates: start: 20200815, end: 20200816
  2. DESCOVY [Suspect]
     Active Substance: EMTRICITABINE\TENOFOVIR ALAFENAMIDE FUMARATE
     Dates: start: 20200815, end: 20200816

REACTIONS (5)
  - Pain [None]
  - Toothache [None]
  - Head discomfort [None]
  - Pruritus [None]
  - Paraesthesia [None]

NARRATIVE: CASE EVENT DATE: 20200816
